FAERS Safety Report 10639412 (Version 1)
Quarter: 2014Q4

REPORT INFORMATION
  Report Type: Spontaneous
  Country: GB (occurrence: GB)
  Receive Date: 20141208
  Receipt Date: 20141208
  Transmission Date: 20150529
  Serious: Yes (Other)
  Sender: FDA-Public Use
  Company Number: PHHY2014GB157914

PATIENT
  Age: 66 Year
  Sex: Male

DRUGS (1)
  1. TRAMADOL [Suspect]
     Active Substance: TRAMADOL
     Indication: BACK PAIN
     Route: 048

REACTIONS (5)
  - Drug withdrawal syndrome [Unknown]
  - Elevated mood [Unknown]
  - Crying [Unknown]
  - Intentional product misuse [Unknown]
  - Depression [Unknown]
